FAERS Safety Report 10384652 (Version 1)
Quarter: 2014Q1

REPORT INFORMATION
  Report Type: Spontaneous
  Country: US (occurrence: None)
  Receive Date: 20140306
  Receipt Date: 20140306
  Transmission Date: 20141002
  Serious: Yes (Other)
  Sender: FDA-Public Use
  Company Number: 163-21880-13120521

PATIENT
  Age: 52 Year
  Sex: Male
  Weight: 129 kg

DRUGS (9)
  1. REVLIMID (LENALIDOMIDE) (CAPSULES) [Suspect]
     Indication: PLASMA CELL MYELOMA
     Route: 048
     Dates: start: 20121231
  2. CALCIUM 500(CALCITE D)(UNKNOWN) [Concomitant]
  3. VITAMIN C(ASCORBIC ACID)(UNKNOWN) [Concomitant]
  4. MVI(MVI)(UNKNOWN) [Concomitant]
  5. COLCHICINE [Concomitant]
  6. POTASSIUM [Concomitant]
  7. FUROSEMIDE [Concomitant]
  8. ALLOPURINOL [Concomitant]
  9. ATENOLOL [Suspect]

REACTIONS (1)
  - Thrombosis [None]
